FAERS Safety Report 24128896 (Version 1)
Quarter: 2024Q3

REPORT INFORMATION
  Report Type: Spontaneous
  Country: US (occurrence: US)
  Receive Date: 20240723
  Receipt Date: 20240723
  Transmission Date: 20241017
  Serious: No
  Sender: KARYOPHARM THERAPEUTICS
  Company Number: US-KARYOPHARM-2024KPT001289

PATIENT

DRUGS (9)
  1. XPOVIO [Suspect]
     Active Substance: SELINEXOR
     Indication: Plasma cell myeloma
     Dosage: 80 MG, 2X/WEEK ON DAYS 1 AND 3 OF EACH WEEK
     Route: 048
     Dates: start: 202406, end: 2024
  2. ACYCLOVIR [Concomitant]
     Active Substance: ACYCLOVIR
  3. DEXAMETHASONE [Concomitant]
     Active Substance: DEXAMETHASONE
  4. ENTRESTO [Concomitant]
     Active Substance: SACUBITRIL\VALSARTAN
  5. METOPROLOL [Concomitant]
     Active Substance: METOPROLOL
  6. OLANZAPINE [Concomitant]
     Active Substance: OLANZAPINE
  7. ONDANSETRON [Concomitant]
     Active Substance: ONDANSETRON
  8. PREGABALIN [Concomitant]
     Active Substance: PREGABALIN
  9. SIMVASTATIN [Concomitant]
     Active Substance: SIMVASTATIN

REACTIONS (3)
  - Feeling abnormal [Unknown]
  - Gait deviation [Unknown]
  - Asthenia [Unknown]

NARRATIVE: CASE EVENT DATE: 20240101
